FAERS Safety Report 4711658-1 (Version None)
Quarter: 2005Q2

REPORT INFORMATION
  Report Type: 
  Country: None (occurrence: None)
  Receive Date: 20050629
  Receipt Date: 20050331
  Transmission Date: 20051028
  Serious: No
  Sender: FDA-Public Use
  Company Number: 05P-163-0295967-00

PATIENT
  Age: 56 Year
  Sex: Female
  Weight: 80.7403 kg

DRUGS (8)
  1. HUMIRA [Suspect]
     Indication: RHEUMATOID ARTHRITIS
     Dosage: 40 MG, 1 IN 2 WK, SUBCUTANEOUS
     Route: 058
     Dates: start: 20040801
  2. PREDNISONE [Concomitant]
  3. DIGOXIN [Concomitant]
  4. LEVOTHYROXINE SODIUM [Concomitant]
  5. RISEDRONATE SODIUM [Concomitant]
  6. OMEPRAZOLE [Concomitant]
  7. SALBUTAMOL [Concomitant]
  8. OXYCODONE HCL [Concomitant]

REACTIONS (2)
  - ARTHRALGIA [None]
  - FOOT FRACTURE [None]
